FAERS Safety Report 5581910-9 (Version None)
Quarter: 2008Q1

REPORT INFORMATION
  Report Type: 
  Country: None (occurrence: None)
  Receive Date: 20080104
  Receipt Date: 20080103
  Transmission Date: 20080703
  Serious: Yes (Death)
  Sender: FDA-Public Use
  Company Number: US-ASTRAZENECA-2008UW00154

PATIENT
  Age: 70 Year
  Sex: Male

DRUGS (3)
  1. ATACAND [Suspect]
     Route: 048
  2. DIGITEK [Concomitant]
  3. LASIX [Concomitant]

REACTIONS (1)
  - VENTRICULAR FIBRILLATION [None]
